FAERS Safety Report 12446538 (Version 1)
Quarter: 2016Q2

REPORT INFORMATION
  Report Type: Spontaneous
  Country: US (occurrence: US)
  Receive Date: 20160608
  Receipt Date: 20160608
  Transmission Date: 20160815
  Serious: No
  Sender: FDA-Public Use
  Company Number: US-BIOGEN-2016BI00243239

PATIENT

DRUGS (1)
  1. TECFIDERA [Suspect]
     Active Substance: DIMETHYL FUMARATE
     Indication: MULTIPLE SCLEROSIS
     Route: 065

REACTIONS (7)
  - Pruritus [Unknown]
  - Abdominal pain upper [Unknown]
  - Neck pain [Unknown]
  - Flushing [Unknown]
  - Migraine [Unknown]
  - Feeling cold [Unknown]
  - Fatigue [Unknown]
